FAERS Safety Report 7395189-9 (Version None)
Quarter: 2011Q2

REPORT INFORMATION
  Report Type: 
  Country: None (occurrence: None)
  Receive Date: 20110405
  Receipt Date: 20110331
  Transmission Date: 20111010
  Serious: Yes (Other)
  Sender: FDA-Public Use
  Company Number: US-PFIZER INC-US-WYE-H05113008

PATIENT
  Sex: Female
  Weight: 41 kg

DRUGS (4)
  1. PREMPRO [Suspect]
     Indication: HORMONE REPLACEMENT THERAPY
     Dosage: UNK
     Route: 048
  2. PREMARIN [Suspect]
     Indication: HORMONE REPLACEMENT THERAPY
     Dosage: 1.25 MG, UNK
     Route: 048
     Dates: start: 19870101, end: 19970101
  3. LIBRIUM [Concomitant]
     Indication: ANXIETY
     Dosage: UNK
     Dates: start: 19900101, end: 20000101
  4. PREMARIN [Suspect]
     Indication: HYSTERECTOMY

REACTIONS (1)
  - BREAST CANCER [None]
